FAERS Safety Report 17404353 (Version 1)
Quarter: 2020Q1

REPORT INFORMATION
  Report Type: Spontaneous
  Country: CA (occurrence: CA)
  Receive Date: 20200211
  Receipt Date: 20200211
  Transmission Date: 20200409
  Serious: Yes (Other)
  Sender: FDA-Public Use
  Company Number: CA-PFIZER INC-2020056654

PATIENT
  Age: 40 Year
  Sex: Female

DRUGS (4)
  1. HUMALOG [Concomitant]
     Active Substance: INSULIN LISPRO
     Indication: DIABETIC RETINAL OEDEMA
     Dosage: UNK
     Route: 065
  2. BEVACIZUMAB. [Suspect]
     Active Substance: BEVACIZUMAB
     Indication: DIABETIC RETINAL OEDEMA
     Dosage: 1 DF, UNK [1 EVERY 2 MONTHS]
     Route: 042
  3. BEVACIZUMAB. [Suspect]
     Active Substance: BEVACIZUMAB
     Indication: DIABETIC RETINAL OEDEMA
     Dosage: 1 DF, UNK [1 EVERY 2 MONTHS]
     Route: 031
  4. LUCENTIS [Suspect]
     Active Substance: RANIBIZUMAB
     Indication: DIABETIC RETINAL OEDEMA
     Dosage: 1 DF, EVERY 3 MONTHS
     Route: 050

REACTIONS (7)
  - Product use in unapproved indication [Unknown]
  - Eye haemorrhage [Not Recovered/Not Resolved]
  - Eye pruritus [Not Recovered/Not Resolved]
  - Diabetic retinal oedema [Not Recovered/Not Resolved]
  - Eye discharge [Not Recovered/Not Resolved]
  - Off label use [Unknown]
  - Nausea [Not Recovered/Not Resolved]
